FAERS Safety Report 18260627 (Version 2)
Quarter: 2020Q3

REPORT INFORMATION
  Report Type: Spontaneous
  Country: DE (occurrence: DE)
  Receive Date: 20200914
  Receipt Date: 20200924
  Transmission Date: 20201103
  Serious: Yes (Other)
  Sender: FDA-Public Use
  Company Number: DE-AUROBINDO-AUR-APL-2020-047333

PATIENT
  Sex: Male
  Weight: 67 kg

DRUGS (3)
  1. PANTOPRAZOLE AUROBINDO GASTRO?RESISTANT TABLETS 20MG [Suspect]
     Active Substance: PANTOPRAZOLE SODIUM
     Indication: GASTRITIS
     Dosage: 20 MILLIGRAM, DAILY
     Route: 048
     Dates: start: 202003
  2. PANTOPRAZOLE AUROBINDO GASTRO?RESISTANT TABLETS 40MG [Suspect]
     Active Substance: PANTOPRAZOLE SODIUM
     Indication: GASTRITIS
     Dosage: 40 MILLIGRAM, DAILY
     Route: 048
     Dates: start: 2013, end: 202002
  3. VIT B 12 [Concomitant]
     Active Substance: CYANOCOBALAMIN
     Indication: VITAMIN B12 DEFICIENCY
     Dosage: UNK
     Route: 065

REACTIONS (10)
  - Fatigue [Not Recovered/Not Resolved]
  - Vomiting [Not Recovered/Not Resolved]
  - Nausea [Not Recovered/Not Resolved]
  - Illness [Not Recovered/Not Resolved]
  - Spinal fracture [Not Recovered/Not Resolved]
  - Disorientation [Not Recovered/Not Resolved]
  - Eye colour change [Not Recovered/Not Resolved]
  - Hepatic enzyme increased [Not Recovered/Not Resolved]
  - Yellow skin [Not Recovered/Not Resolved]
  - Asthenia [Not Recovered/Not Resolved]

NARRATIVE: CASE EVENT DATE: 20200308
